FAERS Safety Report 9770740 (Version 4)
Quarter: 2014Q1

REPORT INFORMATION
  Report Type: Spontaneous
  Country: US (occurrence: US)
  Receive Date: 20131218
  Receipt Date: 20140314
  Transmission Date: 20141002
  Serious: Yes (Hospitalization, Other)
  Sender: FDA-Public Use
  Company Number: US-BAXTER-2013BAX050139

PATIENT
  Sex: Female

DRUGS (3)
  1. DIANEAL LOW CALCIUM [Suspect]
     Indication: RENAL FAILURE CHRONIC
     Route: 033
     Dates: start: 20120813
  2. DIANEAL LOW CALCIUM [Suspect]
     Indication: RENAL FAILURE CHRONIC
     Route: 033
     Dates: start: 20120813
  3. DIANEAL LOW CALCIUM (ULTRABAG) [Suspect]
     Indication: PERITONEAL DIALYSIS
     Route: 033

REACTIONS (8)
  - Cardiac disorder [Recovering/Resolving]
  - Leukocytosis [Recovering/Resolving]
  - Lower limb fracture [Recovering/Resolving]
  - Hypoxia [Recovering/Resolving]
  - Diabetic complication [Recovering/Resolving]
  - Gastritis [Recovering/Resolving]
  - Cough [Recovering/Resolving]
  - Fall [Recovering/Resolving]
